FAERS Safety Report 11751882 (Version 1)
Quarter: 2015Q4

REPORT INFORMATION
  Report Type: Spontaneous
  Country: US (occurrence: US)
  Receive Date: 20151118
  Receipt Date: 20151118
  Transmission Date: 20160304
  Serious: No
  Sender: FDA-Public Use
  Company Number: US-AQUA-2015AQU000014

PATIENT
  Age: 55 Year
  Sex: Female
  Weight: 99.79 kg

DRUGS (2)
  1. VERDESO [Suspect]
     Active Substance: DESONIDE
     Indication: DERMATITIS
     Route: 061
     Dates: start: 20140218
  2. AMTURNIDE [Concomitant]
     Active Substance: ALISKIREN HEMIFUMARATE\AMLODIPINE BESYLATE\HYDROCHLOROTHIAZIDE

REACTIONS (2)
  - Drug ineffective [Not Recovered/Not Resolved]
  - Intentional product misuse [Not Recovered/Not Resolved]

NARRATIVE: CASE EVENT DATE: 201406
